FAERS Safety Report 8167413-6 (Version None)
Quarter: 2012Q1

REPORT INFORMATION
  Report Type: 
  Country: None (occurrence: None)
  Receive Date: 20120227
  Receipt Date: 20120220
  Transmission Date: 20120608
  Serious: Yes (Death, Hospitalization)
  Sender: FDA-Public Use
  Company Number: FR-ELI_LILLY_AND_COMPANY-FR201202006910

PATIENT
  Sex: Male

DRUGS (4)
  1. GEMCITABINE HYDROCHLORIDE [Concomitant]
     Indication: NON-SMALL CELL LUNG CANCER
     Dosage: 1250 MG, UNK
     Route: 042
     Dates: start: 20101130, end: 20110315
  2. PEMETREXED [Suspect]
     Indication: NON-SMALL CELL LUNG CANCER
     Dosage: 865 MG, UNK
     Dates: start: 20120130, end: 20120130
  3. CETUXIMAB [Concomitant]
     Indication: NON-SMALL CELL LUNG CANCER
     Dosage: 250 MG/M2, UNK
     Route: 042
     Dates: start: 20100130, end: 20120116
  4. CILENGITIDE [Concomitant]
     Indication: NON-SMALL CELL LUNG CANCER
     Dosage: 2000 MG, UNK
     Route: 042
     Dates: start: 20101130, end: 20120116

REACTIONS (2)
  - APHASIA [None]
  - SEPTIC SHOCK [None]
